FAERS Safety Report 7341600-9 (Version None)
Quarter: 2011Q1

REPORT INFORMATION
  Report Type: 
  Country: None (occurrence: None)
  Receive Date: 20110228
  Receipt Date: 20110207
  Transmission Date: 20110831
  Serious: Yes (Death)
  Sender: FDA-Public Use
  Company Number: 2135225-2011-00010

PATIENT
  Age: 73 Year
  Sex: Male

DRUGS (2)
  1. AETHOXYSKLEROL [Suspect]
     Indication: VARICES OESOPHAGEAL
     Dosage: SUBMUCOUS
     Dates: start: 19900101
  2. HISTOACRYL: DILUTED WITH LIPIODOL ULTRA-FLUID (1:1) [Concomitant]

REACTIONS (4)
  - GASTROINTESTINAL NECROSIS [None]
  - CIRCULATORY COLLAPSE [None]
  - CARDIAC FAILURE [None]
  - OESOPHAGEAL HAEMORRHAGE [None]
